FAERS Safety Report 18192112 (Version 1)
Quarter: 2020Q3

REPORT INFORMATION
  Report Type: Spontaneous
  Country: US (occurrence: US)
  Receive Date: 20200825
  Receipt Date: 20200825
  Transmission Date: 20201103
  Serious: No
  Sender: FDA-Public Use
  Company Number: US-PFIZER INC-2020327499

PATIENT
  Age: 72 Year
  Sex: Female

DRUGS (1)
  1. METAXALONE. [Suspect]
     Active Substance: METAXALONE
     Dosage: 800 MG, 1 EVERY NIGHT AS NEEDED.

REACTIONS (6)
  - Hypoaesthesia [Unknown]
  - Off label use [Unknown]
  - Depressed mood [Unknown]
  - Asthenia [Unknown]
  - Insomnia [Unknown]
  - Back pain [Unknown]
